FAERS Safety Report 13228621 (Version 2)
Quarter: 2018Q1

REPORT INFORMATION
  Report Type: Spontaneous
  Country: US (occurrence: US)
  Receive Date: 20170213
  Receipt Date: 20180219
  Transmission Date: 20180508
  Serious: No
  Sender: FDA-Public Use
  Company Number: US-ROCHE-1868570

PATIENT
  Sex: Female

DRUGS (13)
  1. CYPROHEPTADINE. [Concomitant]
     Active Substance: CYPROHEPTADINE
     Dosage: FOR 60 DAYS
     Route: 048
  2. DOXEPIN [Concomitant]
     Active Substance: DOXEPIN
     Route: 065
  3. XOLAIR [Suspect]
     Active Substance: OMALIZUMAB
     Indication: IDIOPATHIC URTICARIA
     Route: 058
     Dates: start: 20160729
  4. CIMETIDINE [Concomitant]
     Active Substance: CIMETIDINE
     Route: 048
  5. EPIPEN [Concomitant]
     Active Substance: EPINEPHRINE
     Dosage: 0.3MG/0.3 ML
     Route: 065
  6. PREDNISOLONE ACETATE. [Concomitant]
     Active Substance: PREDNISOLONE ACETATE
     Route: 065
  7. PREDNISONE. [Concomitant]
     Active Substance: PREDNISONE
     Route: 065
  8. SULFAMETHOXAZOLE/TRIMETHOPRIM [Concomitant]
     Active Substance: SULFAMETHOXAZOLE\TRIMETHOPRIM
     Dosage: SULFAMETHOXAZOLE 800MG-TRIMETHOPRIM 160MG
     Route: 065
  9. ZOLPIDEM [Concomitant]
     Active Substance: ZOLPIDEM\ZOLPIDEM TARTRATE
     Route: 065
  10. PIMOZIDE. [Concomitant]
     Active Substance: PIMOZIDE
     Dosage: 1 TABLET AT NIGHT
     Route: 065
  11. TEMAZEPAM. [Concomitant]
     Active Substance: TEMAZEPAM
     Route: 048
  12. VIGAMOX [Concomitant]
     Active Substance: MOXIFLOXACIN HYDROCHLORIDE
     Route: 065
  13. HYDROXYZINE HCL [Concomitant]
     Active Substance: HYDROXYZINE HYDROCHLORIDE
     Route: 048

REACTIONS (2)
  - Pruritus [Not Recovered/Not Resolved]
  - Drug effect decreased [Unknown]
